FAERS Safety Report 12236720 (Version 2)
Quarter: 2016Q2

REPORT INFORMATION
  Report Type: Spontaneous
  Country: HU (occurrence: HU)
  Receive Date: 20160405
  Receipt Date: 20160412
  Transmission Date: 20160815
  Serious: Yes (Other)
  Sender: FDA-Public Use
  Company Number: HU-AMGEN-HUNSP2016040702

PATIENT
  Age: 43 Year
  Sex: Female

DRUGS (12)
  1. ENBREL [Suspect]
     Active Substance: ETANERCEPT
     Dosage: 50 MG, WEEKLY, 1X1
     Route: 065
     Dates: start: 201601, end: 201603
  2. MEFORAL                            /00082701/ [Concomitant]
     Indication: DIABETES MELLITUS
     Dosage: 1000 MG, 1 IN THE MORNING, STARTED 3 YEARS AGO
  3. B1 VITAMIN [Concomitant]
     Indication: HYPOAESTHESIA
     Dosage: AT 10 MG, 2X1, STARTED 3 MONTHS AGO
     Dates: start: 201502
  4. MEFORAL                            /00082701/ [Concomitant]
     Indication: DIABETES MELLITUS
     Dosage: AT 1000 MG, 1 IN THE MORNING, STARTED 3 YEARS AGO
     Dates: start: 2013
  5. ENBREL [Suspect]
     Active Substance: ETANERCEPT
     Indication: RHEUMATOID ARTHRITIS
     Dosage: 50 MG, WEEKLY, 1X1
     Route: 065
     Dates: start: 201302, end: 201509
  6. VICTOZA [Concomitant]
     Active Substance: LIRAGLUTIDE
     Indication: DIABETES MELLITUS
     Dosage: 6 MG/ML, STARTED 2 YEARS AGO
     Dates: start: 2014
  7. DELAGIL [Concomitant]
     Indication: RHEUMATOID ARTHRITIS
     Dosage: AT 1 IN THE MORNING, STARTED 3 MONTHS BEFORE
     Dates: start: 201502, end: 201603
  8. TENAXUM [Concomitant]
     Active Substance: RILMENIDINE
     Indication: HYPERTENSION
     Dosage: AT 1 MG, 1 IN THE MORNING, STARTED 2 YEARS BEFORE
     Dates: start: 2014
  9. L-THYROXIN HENNING [Concomitant]
     Indication: RHEUMATOID ARTHRITIS
     Dosage: 100 MUG, QD
     Dates: start: 2006
  10. BERES MAGNEZIUM+B6 [Concomitant]
     Indication: MUSCLE SPASMS
     Dosage: MG 250 MG + B6, 1 IN THE MORNING, STARTED 5 MONTHS AGO
     Dates: start: 201510
  11. L-THYROXIN HENNING [Concomitant]
     Indication: HYPOTHYROIDISM
     Dosage: 50 UG, 1/2 IN THE MORNING, STARTED 10 YEARS AGO
  12. KARBIS [Concomitant]
     Active Substance: CANDESARTAN CILEXETIL
     Indication: HYPERTENSION
     Dosage: AT 8 MG, 1 IN THE MORNING, STARTED 2 YEARS BEFORE
     Dates: start: 2014

REACTIONS (3)
  - Musculoskeletal pain [Unknown]
  - Drug ineffective [Not Recovered/Not Resolved]
  - Ligament rupture [Unknown]

NARRATIVE: CASE EVENT DATE: 201506
